FAERS Safety Report 5839211-7 (Version None)
Quarter: 2008Q3

REPORT INFORMATION
  Report Type: 
  Country: None (occurrence: None)
  Receive Date: 20080806
  Receipt Date: 20080721
  Transmission Date: 20090109
  Serious: Yes (Other)
  Sender: FDA-Public Use
  Company Number: 8035094

PATIENT
  Age: 6 Year
  Sex: Female

DRUGS (2)
  1. METHYLPHENIDATE HCL [Suspect]
     Indication: DISTURBANCE IN ATTENTION
     Dosage: 5 MG /D PO
     Route: 048
  2. VALPROIC ACID [Suspect]
     Indication: EPILEPSY

REACTIONS (3)
  - BRUXISM [None]
  - DRUG INTERACTION [None]
  - DYSKINESIA [None]
